FAERS Safety Report 7106595 (Version 6)
Quarter: 2013Q4

REPORT INFORMATION
  Report Type: Spontaneous
  Country: JP (occurrence: JP)
  Receive Date: 20090907
  Receipt Date: 20131004
  Transmission Date: 20140711
  Serious: Yes (Other)
  Sender: FDA-Public Use
  Company Number: JP-ALLERGAN-0907850US

PATIENT
  Age: 40 Year
  Sex: Female

DRUGS (16)
  1. BOTOX [Suspect]
     Indication: TORTICOLLIS
     Dosage: 60 UNITS, SINGLE
     Route: 030
     Dates: start: 20030810, end: 20030810
  2. BOTOX [Suspect]
     Dosage: 60 UNITS, SINGLE
     Route: 030
     Dates: start: 20030815, end: 20030815
  3. BOTOX [Suspect]
     Dosage: 80 UNITS, SINGLE
     Route: 030
     Dates: start: 20031024, end: 20031024
  4. BOTOX [Suspect]
     Dosage: 90 UNITS, SINGLE
     Route: 030
     Dates: start: 20040128, end: 20040128
  5. BOTOX [Suspect]
     Dosage: 90 UNITS, SINGLE
     Route: 030
     Dates: start: 20040428, end: 20040428
  6. BOTOX [Suspect]
     Dosage: 100 UNITS, SINGLE
     Route: 030
     Dates: start: 20040805, end: 20040805
  7. BOTOX [Suspect]
     Dosage: UNK UNITS, SINGLE
     Route: 030
     Dates: start: 200805, end: 200805
  8. CLONAZEPAM [Concomitant]
     Indication: HYPOTONIA
     Dosage: UNK
     Route: 048
     Dates: start: 199812
  9. DANTROLENE SODIUM [Concomitant]
     Indication: HYPOTONIA
     Dosage: UNK MG, TID
     Route: 048
     Dates: start: 199812
  10. DANTROLENE SODIUM [Concomitant]
     Dosage: 125 MG, QD
     Route: 048
     Dates: start: 20030811
  11. ETIZOLAM [Concomitant]
     Indication: HYPOTONIA
     Dosage: 1 MG, QD
     Route: 048
     Dates: start: 200108
  12. NITRAZEPAM [Concomitant]
     Indication: INSOMNIA
     Dosage: 5 MG, QD
     Route: 048
     Dates: start: 200011
  13. FLUVOXAMINE MALEATE [Concomitant]
     Indication: DEPRESSION
     Dosage: 50 MG, BID
     Route: 048
     Dates: start: 200701
  14. ZOLPIDEM TARTRATE [Concomitant]
     Indication: INSOMNIA
     Dosage: 5 MG, QD
     Route: 048
     Dates: start: 200705
  15. LIORESAL [Concomitant]
     Indication: CEREBRAL PALSY
     Dosage: 10 MG, QD
     Route: 048
     Dates: start: 20030811
  16. TIZANIDINE HYDROCHLORIDE [Concomitant]
     Indication: CEREBRAL PALSY
     Dosage: 3 MG, QD
     Route: 048
     Dates: start: 20030811

REACTIONS (4)
  - Wheezing [Recovered/Resolved]
  - Hypophagia [Recovered/Resolved]
  - Eating disorder [Recovered/Resolved]
  - Dysphagia [Recovered/Resolved]
